FAERS Safety Report 9986169 (Version 1)
Quarter: 2014Q1

REPORT INFORMATION
  Report Type: Report from Study
  Country: US (occurrence: US)
  Receive Date: 20140307
  Receipt Date: 20140307
  Transmission Date: 20141002
  Serious: No
  Sender: FDA-Public Use
  Company Number: US-ABBVIE-13P-163-1086450-00

PATIENT
  Age: 38 Year
  Sex: Female
  Weight: 54.48 kg

DRUGS (2)
  1. HUMIRA [Suspect]
     Indication: PSORIASIS
     Dates: start: 201211, end: 201303
  2. TOPOMAX [Concomitant]
     Indication: MIGRAINE

REACTIONS (4)
  - Pain in extremity [Recovered/Resolved]
  - Muscle spasms [Recovered/Resolved]
  - Psoriasis [Recovered/Resolved]
  - Hypersensitivity [Recovered/Resolved]
